FAERS Safety Report 13423102 (Version 3)
Quarter: 2017Q3

REPORT INFORMATION
  Report Type: Spontaneous
  Country: DK (occurrence: DK)
  Receive Date: 20170410
  Receipt Date: 20170829
  Transmission Date: 20171127
  Serious: Yes (Hospitalization, Disabling)
  Sender: FDA-Public Use
  Company Number: PHHY2017DK048373

PATIENT
  Age: 71 Year
  Sex: Male
  Weight: 86 kg

DRUGS (4)
  1. CENTYL MED KALIUMKLORID [Concomitant]
     Active Substance: BENDROFLUMETHIAZIDE\POTASSIUM CHLORIDE
     Indication: HYPERTENSION
     Route: 048
     Dates: start: 200508
  2. HJERTEMAGNYL [Concomitant]
     Active Substance: ASPIRIN\MAGNESIUM OXIDE
     Indication: ANTICOAGULANT THERAPY
     Route: 048
     Dates: start: 200508
  3. SIMVASTATIN SANDOZ [Suspect]
     Active Substance: SIMVASTATIN
     Indication: HYPERCHOLESTEROLAEMIA
     Dosage: 40 MG, UNK
     Route: 048
     Dates: start: 20110930, end: 2016
  4. AMLODIPIN SANDOZ [Concomitant]
     Indication: HYPERTENSION
     Route: 048
     Dates: start: 200508

REACTIONS (3)
  - Arthralgia [Unknown]
  - Tendon rupture [Not Recovered/Not Resolved]
  - Arthropathy [Unknown]

NARRATIVE: CASE EVENT DATE: 20151211
